FAERS Safety Report 7273787-0 (Version None)
Quarter: 2011Q1

REPORT INFORMATION
  Report Type: 
  Country: None (occurrence: None)
  Receive Date: 20110203
  Receipt Date: 20110201
  Transmission Date: 20110831
  Serious: Yes (Life-Threatening, Hospitalization, Other)
  Sender: FDA-Public Use
  Company Number: GB-PFIZER INC-2011007837

PATIENT
  Age: 34 Year
  Sex: Male

DRUGS (7)
  1. DOXAZOSIN MESYLATE [Suspect]
     Route: 065
  2. AMLODIPINE BESYLATE [Suspect]
     Dosage: UNK
     Route: 065
  3. CITALOPRAM [Suspect]
     Dosage: 240 MG, UNK
     Route: 065
  4. TEMAZEPAM [Suspect]
     Dosage: 120 MG, UNK
     Route: 065
  5. CO-CODAMOL [Suspect]
     Route: 065
  6. PERINDOPRIL [Suspect]
     Route: 065
  7. DIAZEPAM [Suspect]
     Dosage: 140 MG, UNK
     Route: 065

REACTIONS (9)
  - HYPOTENSION [None]
  - RENAL FAILURE [None]
  - SUICIDE ATTEMPT [None]
  - HYPOXIA [None]
  - LOSS OF CONSCIOUSNESS [None]
  - HYPOKALAEMIA [None]
  - CRYSTALLURIA [None]
  - OVERDOSE [None]
  - METABOLIC ACIDOSIS [None]
